FAERS Safety Report 5500656-6 (Version None)
Quarter: 2007Q4

REPORT INFORMATION
  Report Type: 
  Country: None (occurrence: None)
  Receive Date: 20071029
  Receipt Date: 20071025
  Transmission Date: 20080405
  Serious: Yes (Disabling)
  Sender: FDA-Public Use
  Company Number: A0689735A

PATIENT
  Age: 32 Year
  Sex: Female

DRUGS (2)
  1. ALLI [Suspect]
     Route: 065
     Dates: start: 20071014, end: 20071020
  2. YAZ [Concomitant]

REACTIONS (5)
  - DIARRHOEA [None]
  - FAECAL INCONTINENCE [None]
  - FLATULENCE [None]
  - FREQUENT BOWEL MOVEMENTS [None]
  - RECTAL DISCHARGE [None]
